FAERS Safety Report 17106307 (Version 1)
Quarter: 2019Q4

REPORT INFORMATION
  Report Type: Spontaneous
  Country: FR (occurrence: FR)
  Receive Date: 20191203
  Receipt Date: 20191203
  Transmission Date: 20200122
  Serious: Yes (Hospitalization)
  Sender: FDA-Public Use
  Company Number: FR-MYLANLABS-2019M1116735

PATIENT
  Age: 41 Year
  Sex: Female
  Weight: 93 kg

DRUGS (3)
  1. IBUPROFEN. [Suspect]
     Active Substance: IBUPROFEN
     Indication: TOOTH ABSCESS
     Dosage: 400 MILLIGRAM, PRN
     Route: 048
     Dates: start: 20180507, end: 20180508
  2. VENTOLINE                          /00139501/ [Concomitant]
     Active Substance: ALBUTEROL
     Dosage: UNK
     Route: 055
  3. AMOXICILLINE                       /00249601/ [Concomitant]
     Active Substance: AMOXICILLIN
     Dosage: 2 GRAM, QD
     Route: 048
     Dates: start: 20180507

REACTIONS (1)
  - Cellulitis [Recovered/Resolved]

NARRATIVE: CASE EVENT DATE: 20180508
